FAERS Safety Report 11054260 (Version 2)
Quarter: 2015Q3

REPORT INFORMATION
  Report Type: Spontaneous
  Country: US (occurrence: US)
  Receive Date: 20150422
  Receipt Date: 20150724
  Transmission Date: 20151125
  Serious: No
  Sender: FDA-Public Use
  Company Number: US-AMGEN-USASP2015038120

PATIENT
  Age: 81 Year
  Sex: Male
  Weight: 55.32 kg

DRUGS (1)
  1. ENBREL [Suspect]
     Active Substance: ETANERCEPT
     Indication: RHEUMATOID ARTHRITIS
     Dosage: 50 MG, ONCE WEEKLY (ON SUNDAYS)
     Route: 065
     Dates: start: 2008, end: 20150712

REACTIONS (6)
  - Dry eye [Unknown]
  - Muscle atrophy [Unknown]
  - Weight decreased [Unknown]
  - Nasal dryness [Unknown]
  - Dry throat [Unknown]
  - Dry mouth [Unknown]
